FAERS Safety Report 7537156-8 (Version None)
Quarter: 2011Q2

REPORT INFORMATION
  Report Type: 
  Country: None (occurrence: None)
  Receive Date: 20110609
  Receipt Date: 20110606
  Transmission Date: 20111010
  Serious: Yes (Death)
  Sender: FDA-Public Use
  Company Number: PHHY2011BR49279

PATIENT
  Age: 78 Year
  Sex: Male

DRUGS (6)
  1. BAMIFIX [Concomitant]
     Indication: CHRONIC OBSTRUCTIVE PULMONARY DISEASE
  2. PANTOPRAZOLE SODIUM [Concomitant]
     Indication: GASTRIC DISORDER
  3. ANDROCUR [Concomitant]
     Indication: PROSTATE CANCER
  4. SPIRIVA [Concomitant]
     Indication: CHRONIC OBSTRUCTIVE PULMONARY DISEASE
  5. ONBREZ [Suspect]
     Dosage: 1 DF, DAILY
     Dates: start: 20110301
  6. FORMOTEROL FUMARATE [Suspect]
     Indication: CHRONIC OBSTRUCTIVE PULMONARY DISEASE
     Dosage: UNK
     Dates: start: 20100801

REACTIONS (1)
  - PROSTATE CANCER [None]
